FAERS Safety Report 6939533-2 (Version None)
Quarter: 2010Q3

REPORT INFORMATION
  Report Type: 
  Country: None (occurrence: None)
  Receive Date: 20100819
  Receipt Date: 20100803
  Transmission Date: 20110219
  Serious: Yes (Other)
  Sender: FDA-Public Use
  Company Number: GB-ACCORD-005823

PATIENT
  Age: 52 Year
  Sex: Female

DRUGS (10)
  1. MYCOPHENOLATE MOFETIL [Suspect]
     Indication: IMMUNOSUPPRESSION
     Dosage: 500.00-MG-2.00PER-1.0DAYS
  2. SIROLIMUS (RAPAMUNE) [Suspect]
     Indication: IMMUNOSUPPRESSION
  3. TACROLIMUS [Suspect]
     Indication: IMMUNOSUPPRESSION
  4. BASILIXIMAB(BASILIXIMAB) [Concomitant]
  5. FAMOTIDINE [Concomitant]
  6. HYDRALAZINE HCL [Concomitant]
  7. METOPROLOL SUCCINATE [Concomitant]
  8. SIMVASTATIN [Concomitant]
  9. TRIMETHOPRIM [Concomitant]
  10. VALGANCICLOVIR HCL [Concomitant]

REACTIONS (4)
  - BLOOD ALKALINE PHOSPHATASE INCREASED [None]
  - BLOOD PARATHYROID HORMONE INCREASED [None]
  - BONE MARROW OEDEMA [None]
  - PAIN IN EXTREMITY [None]
